FAERS Safety Report 5060372-4 (Version None)
Quarter: 2006Q3

REPORT INFORMATION
  Report Type: 
  Country: None (occurrence: None)
  Receive Date: 20060720
  Receipt Date: 20060712
  Transmission Date: 20061208
  Serious: Yes (Hospitalization)
  Sender: FDA-Public Use
  Company Number: 200610409GDS

PATIENT
  Age: 50 Year
  Sex: Male

DRUGS (5)
  1. ADALAT [Suspect]
     Indication: HYPERTENSION
     Dosage: 30  MG, TOTAL DAILY, ORAL
     Route: 048
     Dates: start: 20051101, end: 20060206
  2. ADALAT [Suspect]
     Indication: HYPERTENSION
     Dosage: 30  MG, TOTAL DAILY, ORAL
     Route: 048
     Dates: start: 20060201
  3. ASPIRIN [Suspect]
     Indication: PROPHYLAXIS
     Dosage: 100 MG, TOTAL DAILY, ORAL
     Route: 048
     Dates: start: 20050901
  4. LOTENSIN [Concomitant]
  5. ACERTIL [Concomitant]

REACTIONS (3)
  - DIZZINESS [None]
  - DYSPNOEA [None]
  - RESPIRATORY DISORDER [None]
